FAERS Safety Report 7233384-X (Version None)
Quarter: 2011Q1

REPORT INFORMATION
  Report Type: 
  Country: None (occurrence: None)
  Receive Date: 20110119
  Receipt Date: 20110111
  Transmission Date: 20110831
  Serious: Yes (Other)
  Sender: FDA-Public Use
  Company Number: US-ROCHE-753325

PATIENT
  Sex: Male
  Weight: 68.2 kg

DRUGS (4)
  1. BONIVA [Suspect]
     Indication: OSTEOPENIA
     Dosage: UNKNOWN DAILY DOSE
     Route: 065
     Dates: start: 20070101
  2. ANDROGEL [Suspect]
     Dosage: OTHER INDICATION: OSTEOPENIA, DOSAGE FORM QD TRANSCUTANEOUS  1 PACKET 1 DOSAGE FORM BID TRANSCUTANEO
     Route: 065
     Dates: start: 20030101, end: 20100101
  3. COZAAR [Concomitant]
  4. ANDROGEL [Suspect]
     Route: 065
     Dates: start: 20101101

REACTIONS (3)
  - OSTEOPOROSIS [None]
  - INSULIN-LIKE GROWTH FACTOR INCREASED [None]
  - OSTEONECROSIS OF JAW [None]
